FAERS Safety Report 5855864-1 (Version None)
Quarter: 2008Q3

REPORT INFORMATION
  Report Type: 
  Country: None (occurrence: None)
  Receive Date: 20080825
  Receipt Date: 20080611
  Transmission Date: 20090109
  Serious: No
  Sender: FDA-Public Use
  Company Number: A0732447A

PATIENT
  Age: 42 Year
  Sex: Male

DRUGS (4)
  1. MALARONE [Suspect]
     Indication: MALARIA PROPHYLAXIS
     Route: 048
     Dates: start: 20070901
  2. LOTREL [Concomitant]
  3. HYDROCHLOROTHIAZIDE [Concomitant]
  4. FOLTX [Concomitant]
     Dates: start: 20080501

REACTIONS (3)
  - MOUTH ULCERATION [None]
  - OEDEMA MOUTH [None]
  - ORAL PAIN [None]
